FAERS Safety Report 15371001 (Version 1)
Quarter: 2018Q3

REPORT INFORMATION
  Report Type: Report from Study
  Country: DE (occurrence: DE)
  Receive Date: 20180911
  Receipt Date: 20180911
  Transmission Date: 20181010
  Serious: Yes (Congenital Anomaly, Other)
  Sender: FDA-Public Use
  Company Number: DE-MYLANLABS-2018M1065581

PATIENT

DRUGS (1)
  1. CANDESARTAN. [Suspect]
     Active Substance: CANDESARTAN
     Indication: HYPERTENSION
     Route: 064

REACTIONS (6)
  - Tracheo-oesophageal fistula [Unknown]
  - Anal atresia [Unknown]
  - Congenital hydronephrosis [Unknown]
  - Fallot^s tetralogy [Unknown]
  - Oesophageal atresia [Unknown]
  - Foetal exposure during pregnancy [Recovered/Resolved]
